FAERS Safety Report 8357998-9 (Version None)
Quarter: 2012Q2

REPORT INFORMATION
  Report Type: 
  Country: None (occurrence: None)
  Receive Date: 20120514
  Receipt Date: 20120503
  Transmission Date: 20120825
  Serious: Yes (Other)
  Sender: FDA-Public Use
  Company Number: FR-JNJFOC-20120506536

PATIENT
  Age: 47 Year
  Sex: Male

DRUGS (1)
  1. ZYTIGA [Suspect]
     Indication: PROSTATE CANCER
     Route: 048
     Dates: start: 20111206, end: 20120326

REACTIONS (4)
  - MYALGIA [None]
  - DECREASED APPETITE [None]
  - WEIGHT DECREASED [None]
  - ECZEMA [None]
